FAERS Safety Report 25229366 (Version 1)
Quarter: 2025Q2

REPORT INFORMATION
  Report Type: Spontaneous
  Country: US (occurrence: None)
  Receive Date: 20250423
  Receipt Date: 20250423
  Transmission Date: 20250716
  Serious: Yes (Death, Life-Threatening, Hospitalization, Other)
  Sender: FDA-CTU
  Company Number: None

PATIENT
  Sex: Male

DRUGS (1)
  1. ONCOTICE [Suspect]
     Active Substance: BACILLUS CALMETTE-GUERIN SUBSTRAIN TICE LIVE ANTIGEN
     Dates: start: 20250317

REACTIONS (7)
  - Urosepsis [None]
  - Infection [None]
  - Confusional state [None]
  - Fall [None]
  - Tremor [None]
  - Urine output decreased [None]
  - Malaise [None]

NARRATIVE: CASE EVENT DATE: 20250317
